FAERS Safety Report 8314777-6 (Version None)
Quarter: 2012Q2

REPORT INFORMATION
  Report Type: 
  Country: None (occurrence: None)
  Receive Date: 20120426
  Receipt Date: 20081110
  Transmission Date: 20120825
  Serious: Yes (Other)
  Sender: FDA-Public Use
  Company Number: US-TEVA-US025004

PATIENT
  Sex: Female
  Weight: 58.566 kg

DRUGS (12)
  1. PROVIGIL [Suspect]
     Indication: POOR QUALITY SLEEP
     Dosage: 200 MILLIGRAM;
     Route: 048
     Dates: start: 20081106, end: 20081109
  2. CELEBREX [Concomitant]
     Indication: OSTEOARTHRITIS
     Dosage: 200 MILLIGRAM;
     Route: 048
     Dates: start: 20081106
  3. PROVIGIL [Suspect]
     Indication: ASTHENIA
  4. VITAMIN A [Concomitant]
     Indication: VITAMIN SUPPLEMENTATION
     Route: 048
  5. PROMETRIUM [Concomitant]
     Indication: HORMONE REPLACEMENT THERAPY
     Dosage: 100 MILLIGRAM;
     Route: 048
  6. MULTI-VITAMIN [Concomitant]
     Indication: VITAMIN SUPPLEMENTATION
     Route: 048
  7. CALCIUM [Concomitant]
     Indication: SUPPLEMENTATION THERAPY
     Route: 048
  8. FISH OIL [Concomitant]
     Indication: SUPPLEMENTATION THERAPY
     Route: 048
  9. WELLBUTRIN XL [Concomitant]
     Indication: MENOPAUSE
     Dosage: 150 MILLIGRAM;
     Route: 048
  10. ESTRATEST H.S. [Concomitant]
     Indication: HORMONE REPLACEMENT THERAPY
     Route: 048
  11. ASCORBIC ACID [Concomitant]
     Indication: VITAMIN SUPPLEMENTATION
     Route: 048
  12. VITAMIN E [Concomitant]
     Indication: VITAMIN SUPPLEMENTATION
     Route: 048

REACTIONS (2)
  - RASH MORBILLIFORM [None]
  - RASH PRURITIC [None]
